FAERS Safety Report 9685212 (Version 1)
Quarter: 2013Q4

REPORT INFORMATION
  Report Type: Spontaneous
  Country: US (occurrence: None)
  Receive Date: 20131112
  Receipt Date: 20131112
  Transmission Date: 20140711
  Serious: Yes (Death, Life-Threatening, Hospitalization)
  Sender: FDA-Public Use
  Company Number: None

PATIENT
  Age: 85 Year
  Sex: Female
  Weight: 63 kg

DRUGS (3)
  1. GADAVIST [Suspect]
     Indication: NUCLEAR MAGNETIC RESONANCE IMAGING
     Dates: start: 20131022, end: 20131022
  2. GADAVIST [Suspect]
     Indication: SCAN WITH CONTRAST
     Dates: start: 20131022, end: 20131022
  3. GADAVIST [Concomitant]

REACTIONS (2)
  - Cough [None]
  - Dyspnoea [None]
